FAERS Safety Report 14837094 (Version 2)
Quarter: 2018Q4

REPORT INFORMATION
  Report Type: Spontaneous
  Country: US (occurrence: US)
  Receive Date: 20180502
  Receipt Date: 20181103
  Transmission Date: 20190204
  Serious: Yes (Death, Hospitalization, Other)
  Sender: FDA-Public Use
  Company Number: US-AUROBINDO-AUR-APL-2018-016948

PATIENT
  Age: 62 Year
  Sex: Male

DRUGS (5)
  1. CLOZAPINE. [Suspect]
     Active Substance: CLOZAPINE
     Indication: SCHIZOPHRENIA
     Dosage: 12.5 MILLIGRAM, DAILY
     Route: 065
  2. CLOZAPINE. [Suspect]
     Active Substance: CLOZAPINE
     Indication: SCHIZOPHRENIA
     Dosage: TITRATED TO 75MG OVER A PERIOD OF FOUR WEEKS
     Route: 065
  3. ALPRAZOLAM. [Concomitant]
     Active Substance: ALPRAZOLAM
     Indication: ANXIETY
     Dosage: TWICE DAILY AS NEEDED
     Route: 065
  4. FLUPHENAZINE DECANOATE. [Concomitant]
     Active Substance: FLUPHENAZINE DECANOATE
     Indication: PRODUCT USED FOR UNKNOWN INDICATION
     Dosage: 100 MILLIGRAM
     Route: 030
  5. FLUPHENAZINE [Concomitant]
     Active Substance: FLUPHENAZINE
     Indication: PRODUCT USED FOR UNKNOWN INDICATION
     Route: 048

REACTIONS (19)
  - Pleural effusion [Not Recovered/Not Resolved]
  - Metabolic acidosis [Unknown]
  - Pyrexia [Unknown]
  - Abdominal pain [Unknown]
  - Dyspnoea [Unknown]
  - Salivary hypersecretion [Unknown]
  - Pneumonia aspiration [Unknown]
  - Cough [Unknown]
  - Hypoxia [Unknown]
  - Sepsis [Fatal]
  - Cardiac failure congestive [Fatal]
  - Orthostatic hypotension [Unknown]
  - Myocarditis [Fatal]
  - Myocardial ischaemia [Unknown]
  - Chest pain [Unknown]
  - Circulatory collapse [Fatal]
  - Acute respiratory failure [Fatal]
  - Hypotension [Unknown]
  - Constipation [Unknown]
